FAERS Safety Report 4440277-X (Version None)
Quarter: 2004Q3

REPORT INFORMATION
  Report Type: 
  Country: None (occurrence: None)
  Receive Date: 20040903
  Receipt Date: 20040621
  Transmission Date: 20050211
  Serious: No
  Sender: FDA-Public Use
  Company Number: US-GLAXOSMITHKLINE-A0515371A

PATIENT
  Age: 75 Year
  Sex: Female

DRUGS (3)
  1. REQUIP [Suspect]
     Indication: RESTLESS LEGS SYNDROME
     Dosage: .25MG THREE TIMES PER DAY
     Route: 048
     Dates: start: 20040301
  2. ACIPHEX [Concomitant]
  3. LORTAB [Concomitant]

REACTIONS (4)
  - ABDOMINAL PAIN UPPER [None]
  - TINNITUS [None]
  - VAGINAL HAEMORRHAGE [None]
  - VISUAL DISTURBANCE [None]
